FAERS Safety Report 16115914 (Version 1)
Quarter: 2019Q1

REPORT INFORMATION
  Report Type: Spontaneous
  Country: IT (occurrence: IT)
  Receive Date: 20190326
  Receipt Date: 20190326
  Transmission Date: 20190418
  Serious: Yes (Other)
  Sender: FDA-Public Use
  Company Number: IT-AUROBINDO-AUR-APL-2019-015499

PATIENT

DRUGS (1)
  1. CARBOPLATIN CONCENTRATE FOR SOLUTION FOR INFUSION [Suspect]
     Active Substance: CARBOPLATIN
     Indication: RECTAL CANCER
     Dosage: 800.9 MILLIGRAM, CYCLICAL
     Route: 042
     Dates: start: 20190204, end: 20190226

REACTIONS (4)
  - Hyperhidrosis [Recovering/Resolving]
  - Hypotension [Recovering/Resolving]
  - Abdominal pain upper [Recovering/Resolving]
  - Off label use [Recovering/Resolving]

NARRATIVE: CASE EVENT DATE: 20190226
